FAERS Safety Report 20183495 (Version 1)
Quarter: 2021Q4

REPORT INFORMATION
  Report Type: Spontaneous
  Country: US (occurrence: US)
  Receive Date: 20211214
  Receipt Date: 20211214
  Transmission Date: 20220303
  Serious: No
  Sender: FDA-Public Use
  Company Number: US-ABBVIE-21K-163-4049326-00

PATIENT
  Age: 85 Year
  Sex: Female
  Weight: 55.388 kg

DRUGS (5)
  1. IMBRUVICA [Suspect]
     Active Substance: IBRUTINIB
     Indication: Chronic lymphocytic leukaemia
     Route: 048
     Dates: start: 201504
  2. Premarin vaginal crean [Concomitant]
     Indication: Product used for unknown indication
  3. Pepcid (NON-ABBVIE) [Concomitant]
     Indication: Product used for unknown indication
  4. Calcium and Vitamin D (NON-ABBVIE) [Concomitant]
     Indication: Product used for unknown indication
  5. COVID-19 VACCINE NOS [Concomitant]
     Active Substance: COVID-19 VACCINE NOS
     Indication: COVID-19 immunisation

REACTIONS (1)
  - Visual impairment [Not Recovered/Not Resolved]

NARRATIVE: CASE EVENT DATE: 20210321
